FAERS Safety Report 17962191 (Version 1)
Quarter: 2020Q2

REPORT INFORMATION
  Report Type: Spontaneous
  Country: US (occurrence: US)
  Receive Date: 20200629
  Receipt Date: 20200629
  Transmission Date: 20200714
  Serious: No
  Sender: FDA-Public Use
  Company Number: None

PATIENT
  Age: 56 Year
  Sex: Male
  Weight: 56 kg

DRUGS (1)
  1. VANCOMYCIN (VANCOMYCIN 1GM/VIL INJ) [Suspect]
     Active Substance: VANCOMYCIN HYDROCHLORIDE
     Indication: RED MAN SYNDROME
     Dates: start: 20190410, end: 20190413

REACTIONS (2)
  - Red man syndrome [None]
  - Flushing [None]

NARRATIVE: CASE EVENT DATE: 20190410
